FAERS Safety Report 20890068 (Version 5)
Quarter: 2022Q3

REPORT INFORMATION
  Report Type: Report from Study
  Country: KR (occurrence: KR)
  Receive Date: 20220530
  Receipt Date: 20220929
  Transmission Date: 20221026
  Serious: Yes (Other)
  Sender: FDA-Public Use
  Company Number: KR-NOVARTISPH-NVSC2022KR123812

PATIENT
  Age: 76 Year
  Sex: Male

DRUGS (6)
  1. BEOVU [Suspect]
     Active Substance: BROLUCIZUMAB-DBLL
     Indication: Neovascular age-related macular degeneration
     Dosage: 6 MG (RIGHT EYE)
     Route: 031
     Dates: start: 20211224, end: 20211224
  2. BEOVU [Suspect]
     Active Substance: BROLUCIZUMAB-DBLL
     Dosage: 6 MG (RIGHT EYE)
     Route: 031
     Dates: start: 20220409, end: 20220409
  3. BEOVU [Suspect]
     Active Substance: BROLUCIZUMAB-DBLL
     Dosage: UNK (RIGHT EYE)
     Route: 065
     Dates: start: 20220425
  4. VIGAMOX [Concomitant]
     Active Substance: MOXIFLOXACIN HYDROCHLORIDE
     Indication: Evidence based treatment
     Dosage: 1 DRP, 24
     Route: 065
     Dates: start: 20211224, end: 202112
  5. VIGAMOX [Concomitant]
     Active Substance: MOXIFLOXACIN HYDROCHLORIDE
     Dosage: 1 DRP, 24
     Route: 065
     Dates: start: 20220409, end: 202204
  6. PRED FORTE [Concomitant]
     Active Substance: PREDNISOLONE ACETATE
     Indication: Prophylaxis
     Dosage: UNK
     Route: 065
     Dates: start: 20220114, end: 202201

REACTIONS (4)
  - Vitreous haze [Recovered/Resolved]
  - Eye inflammation [Recovering/Resolving]
  - Anterior chamber cell [Recovered/Resolved]
  - Vitreous opacities [Unknown]

NARRATIVE: CASE EVENT DATE: 20220509
